FAERS Safety Report 4471989-X (Version None)
Quarter: 2004Q4

REPORT INFORMATION
  Report Type: 
  Country: None (occurrence: None)
  Receive Date: 20041007
  Receipt Date: 20040924
  Transmission Date: 20050328
  Serious: Yes (Hospitalization, Other)
  Sender: FDA-Public Use
  Company Number: 2004056329

PATIENT
  Age: 34 Year
  Sex: Male
  Weight: 70 kg

DRUGS (13)
  1. ZITHROMAX [Suspect]
     Indication: BRONCHITIS
     Dosage: 500 MG (500 MG, 1 IN 1 D) ,ORAL
     Route: 048
     Dates: start: 20040810, end: 20040812
  2. ZITHROMAX [Suspect]
     Indication: UPPER RESPIRATORY TRACT INFLAMMATION
     Dosage: 500 MG (500 MG, 1 IN 1 D) ,ORAL
     Route: 048
     Dates: start: 20040810, end: 20040812
  3. DICLOFENAC SODIUM [Suspect]
     Indication: ILL-DEFINED DISORDER
     Dosage: 75 MG (25 MG, 3 IN 1 D), ORAL : 50 MG (50 MG, AS NECESSARY), RECTAL
     Route: 048
     Dates: start: 20040810, end: 20040812
  4. DICLOFENAC SODIUM [Suspect]
     Indication: PYREXIA
     Dosage: 75 MG (25 MG, 3 IN 1 D), ORAL : 50 MG (50 MG, AS NECESSARY), RECTAL
     Route: 048
     Dates: start: 20040810, end: 20040812
  5. DICLOFENAC SODIUM [Suspect]
     Indication: ILL-DEFINED DISORDER
     Dosage: 75 MG (25 MG, 3 IN 1 D), ORAL : 50 MG (50 MG, AS NECESSARY), RECTAL
     Route: 048
     Dates: start: 20040810, end: 20040812
  6. DICLOFENAC SODIUM [Suspect]
     Indication: PYREXIA
     Dosage: 75 MG (25 MG, 3 IN 1 D), ORAL : 50 MG (50 MG, AS NECESSARY), RECTAL
     Route: 048
     Dates: start: 20040810, end: 20040812
  7. PL GRAN. (CAFFEINE, PARACETAMOL, PROMETHAZINE METHYLENE DISALICYLATE) [Concomitant]
  8. TRANEXAMIC ACID [Concomitant]
  9. SERRAPEPTASE [Concomitant]
  10. REBAMIPIDE [Concomitant]
  11. POVIDONE IODINE [Concomitant]
  12. SOLITA-T 3G (CARBOHYDRATES NOS, POTASSIUM CHLORID, ) [Concomitant]
  13. B-KOMPLEX ^LECIVA^ [Concomitant]

REACTIONS (5)
  - DRUG ERUPTION [None]
  - EXANTHEM [None]
  - STEVENS-JOHNSON SYNDROME [None]
  - UVEITIS [None]
  - VIRAL INFECTION [None]
